FAERS Safety Report 4878080-9 (Version None)
Quarter: 2006Q1

REPORT INFORMATION
  Report Type: 
  Country: None (occurrence: None)
  Receive Date: 20060110
  Receipt Date: 20051227
  Transmission Date: 20060701
  Serious: Yes (Hospitalization)
  Sender: FDA-Public Use
  Company Number: 099580

PATIENT
  Age: 53 Year
  Sex: Male
  Weight: 43 kg

DRUGS (19)
  1. RITUXAN [Suspect]
     Indication: NON-HODGKIN'S LYMPHOMA
     Dosage: 517.5 MG
     Dates: start: 20010912
  2. VINCRISTINE [Suspect]
     Indication: NON-HODGKIN'S LYMPHOMA
  3. CYCLOPHOSPHAMIDE [Suspect]
     Indication: NON-HODGKIN'S LYMPHOMA
  4. ETOPOSIDE(ETOPSIDE) [Suspect]
     Indication: NON-HODGKIN'S LYMPHOMA
  5. DOXORUBICIN HCL [Suspect]
     Indication: NON-HODGKIN'S LYMPHOMA
  6. PREDNISOLONE [Suspect]
     Indication: NON-HODGKIN'S LYMPHOMA
  7. CYCLOPHOSPHAMIDE [Concomitant]
  8. CYTARABINE [Concomitant]
  9. DEXAMETHASONE [Concomitant]
  10. ETOPOSIDE [Concomitant]
  11. PREMEDICATION DRUGS (ANESTHETIC PREMEDICATION NOS) [Concomitant]
  12. KYTRIL [Concomitant]
  13. LASIX [Concomitant]
  14. FAMOTIDINE [Concomitant]
  15. ULGUT (BENEXATE) [Concomitant]
  16. SULFAMETHOXAZOLE + TRIMETHOPRIM [Concomitant]
  17. DIFLUCAN (FLUCONAZOLE) [Concomitant]
  18. ALLOPURINOL [Concomitant]
  19. LOXONIN (LOXOPROFEN SODIUM) [Concomitant]

REACTIONS (6)
  - BLOOD PRESSURE SYSTOLIC INCREASED [None]
  - HEADACHE [None]
  - NEUTROPHIL PERCENTAGE DECREASED [None]
  - PERITONITIS [None]
  - SEPSIS [None]
  - WHITE BLOOD CELL COUNT DECREASED [None]
